FAERS Safety Report 5304628-6 (Version None)
Quarter: 2007Q2

REPORT INFORMATION
  Report Type: 
  Country: None (occurrence: None)
  Receive Date: 20070423
  Receipt Date: 20070419
  Transmission Date: 20071010
  Serious: Yes (Life-Threatening, Hospitalization)
  Sender: FDA-Public Use
  Company Number: FR-GLAXOSMITHKLINE-B0467230A

PATIENT
  Age: 84 Year
  Sex: Male
  Weight: 82 kg

DRUGS (5)
  1. VALACYCLOVIR HCL [Suspect]
     Indication: HERPES ZOSTER
     Route: 048
     Dates: start: 20070319, end: 20070325
  2. AMARYL [Concomitant]
     Dosage: 2MG PER DAY
     Route: 048
     Dates: end: 20070326
  3. ASASANTINE [Concomitant]
     Route: 048
     Dates: end: 20070325
  4. ZOFENOPRIL [Concomitant]
     Route: 048
  5. SIMVASTATIN [Concomitant]
     Route: 048

REACTIONS (9)
  - BLISTER [None]
  - ECCHYMOSIS [None]
  - EPISTAXIS [None]
  - HAEMATURIA [None]
  - LEUKOCYTURIA [None]
  - PETECHIAE [None]
  - PROTEINURIA [None]
  - PURPURA [None]
  - THROMBOCYTOPENIA [None]
